FAERS Safety Report 4958838-8 (Version None)
Quarter: 2006Q1

REPORT INFORMATION
  Report Type: 
  Country: None (occurrence: None)
  Receive Date: 20060324
  Receipt Date: 20060314
  Transmission Date: 20060701
  Serious: Yes (Death, Life-Threatening)
  Sender: FDA-Public Use
  Company Number: HQWYE357516MAR06

PATIENT
  Age: 52 Year
  Sex: Male

DRUGS (14)
  1. MYLOTARG [Suspect]
     Indication: ACUTE MYELOID LEUKAEMIA RECURRENT
     Dosage: A SINGLE 5 MG/M^2 DOSE INTRAVENOUS DRIP
     Route: 041
     Dates: start: 20060123, end: 20060123
  2. SODIUM BICARBONATE [Concomitant]
  3. HABEKACIN (ARBEKACIN) [Concomitant]
  4. LAMIVUDINE [Concomitant]
  5. FAMOTIDINE [Concomitant]
  6. MUCOSTA (REBAMIPIDE) [Concomitant]
  7. SULFAMETHOXAZOLE + TRIMETHOPRIM [Concomitant]
  8. POLYMYXIN (POLYMYXIN B) [Concomitant]
  9. FUNGIZONE [Concomitant]
  10. URSO 250 [Concomitant]
  11. ALLOPURINOL [Concomitant]
  12. ALLOPURINOL [Concomitant]
  13. ANTIBIOTIC (ANTIBIOTIC), FINIBAX (DORIPENEM HYDRATE) [Concomitant]
  14. FRAGMIN [Concomitant]

REACTIONS (9)
  - ANAPHYLACTIC REACTION [None]
  - CARDIAC FAILURE CONGESTIVE [None]
  - CHILLS [None]
  - CONDITION AGGRAVATED [None]
  - DISEASE PROGRESSION [None]
  - NEUTROPHIL PERCENTAGE DECREASED [None]
  - PNEUMONIA [None]
  - PYREXIA [None]
  - WHITE BLOOD CELL COUNT DECREASED [None]
